FAERS Safety Report 10498852 (Version 3)
Quarter: 2020Q2

REPORT INFORMATION
  Report Type: Spontaneous
  Country: JP (occurrence: JP)
  Receive Date: 20141006
  Receipt Date: 20200625
  Transmission Date: 20200713
  Serious: Yes (Other)
  Sender: FDA-Public Use
  Company Number: JP-SA-2014SA135833

PATIENT

DRUGS (8)
  1. ZOLPIDEM TARTRATE. [Suspect]
     Active Substance: ZOLPIDEM TARTRATE
     Indication: INSOMNIA
     Dosage: 5 MG, QD, AT 11 PM
     Route: 048
     Dates: start: 201409, end: 201409
  2. ZOLPIDEM TARTRATE. [Suspect]
     Active Substance: ZOLPIDEM TARTRATE
     Indication: DYSSTASIA
     Dosage: 100 MG,TOTAL
     Route: 048
     Dates: start: 201409, end: 201409
  3. RAMELTEON [Suspect]
     Active Substance: RAMELTEON
     Dosage: 4 MG, QD, DAY 7
  4. ANEXATE [Suspect]
     Active Substance: FLUMAZENIL
     Indication: COORDINATION ABNORMAL
     Dosage: UNK UNK,UNK
     Route: 065
     Dates: start: 20140925
  5. RAMELTEON [Suspect]
     Active Substance: RAMELTEON
     Dosage: 8 MG, QD, DAY 3
  6. ZOLPIDEM TARTRATE. [Suspect]
     Active Substance: ZOLPIDEM TARTRATE
     Indication: DROOLING
  7. ZOLPIDEM TARTRATE. [Suspect]
     Active Substance: ZOLPIDEM TARTRATE
     Indication: CIRCADIAN RHYTHM SLEEP DISORDER
  8. RAMELTEON [Suspect]
     Active Substance: RAMELTEON
     Indication: CIRCADIAN RHYTHM SLEEP DISORDER
     Dosage: 8 MG, QD

REACTIONS (5)
  - Depressed level of consciousness [Recovered/Resolved]
  - Drooling [Recovered/Resolved]
  - Coordination abnormal [Recovered/Resolved]
  - Intentional overdose [Recovered/Resolved]
  - Off label use [Recovered/Resolved]

NARRATIVE: CASE EVENT DATE: 201409
